FAERS Safety Report 11620862 (Version 1)
Quarter: 2015Q4

REPORT INFORMATION
  Report Type: Spontaneous
  Country: BR (occurrence: BR)
  Receive Date: 20151012
  Receipt Date: 20151012
  Transmission Date: 20160304
  Serious: Yes (Other)
  Sender: FDA-Public Use
  Company Number: CHPA2015BR011863

PATIENT
  Sex: Male

DRUGS (1)
  1. OTRIVINA [Suspect]
     Active Substance: XYLOMETAZOLINE
     Indication: NASAL CONGESTION
     Dosage: UNK
     Route: 065
     Dates: start: 1975

REACTIONS (2)
  - Hypersensitivity [Unknown]
  - Cerebrovascular accident [Unknown]
